FAERS Safety Report 5879838-X (Version None)
Quarter: 2008Q3

REPORT INFORMATION
  Report Type: 
  Country: None (occurrence: None)
  Receive Date: 20080912
  Receipt Date: 20080902
  Transmission Date: 20090109
  Serious: Yes (Hospitalization)
  Sender: FDA-Public Use
  Company Number: KR-BRISTOL-MYERS SQUIBB COMPANY-14291314

PATIENT
  Age: 21 Year
  Sex: Female

DRUGS (12)
  1. ABATACEPT [Suspect]
     Indication: SYSTEMIC LUPUS ERYTHEMATOSUS
     Dosage: INTERRUPTED ON 16JUL08.
     Route: 042
     Dates: start: 20080521
  2. BLINDED: PLACEBO [Suspect]
     Indication: SYSTEMIC LUPUS ERYTHEMATOSUS
     Dosage: INTERRUPTED ON: 16-JUL-2008
     Dates: start: 20080521
  3. MYCOPHENOLATE MOFETIL [Suspect]
     Indication: SYSTEMIC LUPUS ERYTHEMATOSUS
     Route: 048
     Dates: start: 20080521, end: 20080805
  4. PREDNISOLONE [Suspect]
     Indication: SYSTEMIC LUPUS ERYTHEMATOSUS
     Dates: start: 20080521
  5. ATENOLOL [Concomitant]
     Route: 048
     Dates: start: 20080423
  6. FUROSEMIDE [Concomitant]
     Route: 048
     Dates: start: 20080421
  7. SIMVASTATIN [Concomitant]
     Route: 048
     Dates: start: 20080507
  8. NIFEDIPINE [Concomitant]
     Route: 048
     Dates: start: 20080507
  9. OXOLAMINE PHOSPHATE [Concomitant]
     Route: 048
     Dates: start: 20080716, end: 20080720
  10. CHLORPHENAMINE [Concomitant]
     Route: 048
     Dates: start: 20080716, end: 20080720
  11. ERDOSTEINE [Concomitant]
     Route: 048
     Dates: start: 20080716, end: 20080720
  12. FAMOTIDINE [Concomitant]
     Route: 048
     Dates: start: 20080412

REACTIONS (2)
  - NASOPHARYNGITIS [None]
  - PNEUMOCYSTIS JIROVECI PNEUMONIA [None]
